FAERS Safety Report 23369264 (Version 3)
Quarter: 2024Q2

REPORT INFORMATION
  Report Type: Spontaneous
  Country: CA (occurrence: CA)
  Receive Date: 20240105
  Receipt Date: 20240607
  Transmission Date: 20240716
  Serious: Yes (Death, Hospitalization, Other)
  Sender: FDA-Public Use
  Company Number: None

PATIENT
  Age: 57 Year
  Sex: Male

DRUGS (15)
  1. METHOTREXATE [Suspect]
     Active Substance: METHOTREXATE
     Indication: Prophylaxis against graft versus host disease
     Route: 065
  2. MYCOPHENOLATE MOFETIL [Suspect]
     Active Substance: MYCOPHENOLATE MOFETIL
     Indication: Prophylaxis against graft versus host disease
     Route: 065
  3. TACROLIMUS [Suspect]
     Active Substance: TACROLIMUS
     Indication: Graft versus host disease
     Route: 065
  4. CYCLOPHOSPHAMIDE [Suspect]
     Active Substance: CYCLOPHOSPHAMIDE
     Indication: Prophylaxis against transplant rejection
     Route: 065
  5. IMATINIB [Suspect]
     Active Substance: IMATINIB
     Indication: Graft versus host disease
     Route: 065
  6. CYCLOSPORINE [Suspect]
     Active Substance: CYCLOSPORINE
     Indication: Prophylaxis against graft versus host disease
     Route: 065
  7. BORTEZOMIB [Suspect]
     Active Substance: BORTEZOMIB
     Indication: Graft versus host disease
     Route: 065
  8. RITUXIMAB [Suspect]
     Active Substance: RITUXIMAB
     Indication: Graft versus host disease
     Route: 065
  9. RUXOLITINIB [Suspect]
     Active Substance: RUXOLITINIB
     Indication: Graft versus host disease
     Route: 065
  10. SIROLIMUS [Suspect]
     Active Substance: SIROLIMUS
     Indication: Graft versus host disease
     Route: 065
  11. BORTEZOMIB [Concomitant]
     Active Substance: BORTEZOMIB
     Indication: Graft versus host disease
     Route: 065
  12. CYCLOPHOSPHAMIDE [Concomitant]
     Active Substance: CYCLOPHOSPHAMIDE
     Indication: Chemotherapy
     Route: 065
  13. IMATINIB [Concomitant]
     Active Substance: IMATINIB
     Indication: Graft versus host disease
     Route: 065
  14. RITUXIMAB [Concomitant]
     Active Substance: RITUXIMAB
     Indication: Graft versus host disease
     Route: 065
  15. RUXOLITINIB [Concomitant]
     Active Substance: RUXOLITINIB
     Indication: Graft versus host disease
     Route: 065

REACTIONS (12)
  - Polyomavirus-associated nephropathy [Fatal]
  - Acute kidney injury [Fatal]
  - Glomerulonephritis [Unknown]
  - Renal tubular necrosis [Unknown]
  - Thrombotic microangiopathy [Fatal]
  - Acute graft versus host disease [Fatal]
  - Chronic graft versus host disease [Fatal]
  - Nephropathy [Fatal]
  - Therapy non-responder [Fatal]
  - Type III immune complex mediated reaction [Fatal]
  - Drug ineffective [Unknown]
  - Product use in unapproved indication [Unknown]
